FAERS Safety Report 25509103 (Version 1)
Quarter: 2025Q3

REPORT INFORMATION
  Report Type: Report from Study
  Country: US (occurrence: US)
  Receive Date: 20250703
  Receipt Date: 20250703
  Transmission Date: 20251020
  Serious: Yes (Other)
  Sender: TAKEDA
  Company Number: US-TAKEDA-2025TUS057618

PATIENT
  Sex: Male

DRUGS (5)
  1. TEDUGLUTIDE [Suspect]
     Active Substance: TEDUGLUTIDE
     Indication: Short-bowel syndrome
     Dosage: UNK UNK, QD
  2. TEDUGLUTIDE [Suspect]
     Active Substance: TEDUGLUTIDE
     Dosage: 2.1 GRAM, QD
     Dates: end: 20250629
  3. TEDUGLUTIDE [Suspect]
     Active Substance: TEDUGLUTIDE
  4. TEDUGLUTIDE [Suspect]
     Active Substance: TEDUGLUTIDE
  5. SODIUM BICARBONATE [Concomitant]
     Active Substance: SODIUM BICARBONATE
     Indication: Short-bowel syndrome
     Dosage: UNK UNK, QD

REACTIONS (8)
  - Weight increased [Unknown]
  - Muscle spasms [Unknown]
  - Cold sweat [Unknown]
  - Stoma complication [Unknown]
  - Abdominal discomfort [Unknown]
  - Fatigue [Unknown]
  - Fluid retention [Unknown]
  - Dyspnoea [Unknown]
